FAERS Safety Report 4851552-9 (Version None)
Quarter: 2005Q4

REPORT INFORMATION
  Report Type: 
  Country: None (occurrence: None)
  Receive Date: 20051212
  Receipt Date: 20051205
  Transmission Date: 20060501
  Serious: Yes (Death)
  Sender: FDA-Public Use
  Company Number: CA-ROCHE-427305

PATIENT
  Age: 51 Year
  Sex: Male
  Weight: 108 kg

DRUGS (9)
  1. KETOROLAC TROMETHAMINE [Suspect]
     Indication: DRUG USE FOR UNKNOWN INDICATION
     Route: 042
  2. HEPARIN [Concomitant]
     Route: 058
  3. RAMIPRIL [Concomitant]
     Route: 048
  4. HYDROCHLOROTHIAZIDE [Concomitant]
  5. PYRIDOXINE HCL [Concomitant]
  6. PANTOPRAZOLE SODIUM [Concomitant]
     Dosage: DOSAGE FORM REPORTED AS ENT
  7. MORPHINE [Concomitant]
  8. FLOVENT [Concomitant]
     Route: 055
  9. SEREVENT [Concomitant]
     Route: 055

REACTIONS (2)
  - CARDIAC ARREST [None]
  - RESPIRATORY ARREST [None]
